FAERS Safety Report 19913859 (Version 1)
Quarter: 2021Q4

REPORT INFORMATION
  Report Type: Spontaneous
  Country: CN (occurrence: CN)
  Receive Date: 20211004
  Receipt Date: 20211004
  Transmission Date: 20220303
  Serious: Yes (Other)
  Sender: FDA-Public Use
  Company Number: CN-BAXTER-2021BAX023845

PATIENT
  Age: 4 Year
  Sex: Female
  Weight: 22 kg

DRUGS (5)
  1. CYCLOPHOSPHAMIDE [Suspect]
     Active Substance: CYCLOPHOSPHAMIDE
     Indication: Acute lymphocytic leukaemia
     Dosage: DILUTED WITH 250 ML OF GLUCOSE AND SODIUM CHLORIDE INJECTION (4:1)
     Route: 041
     Dates: start: 20191024, end: 20191024
  2. DEXTROSE\SODIUM CHLORIDE [Suspect]
     Active Substance: DEXTROSE\SODIUM CHLORIDE
     Indication: Medication dilution
     Dosage: USE AS DILUENT FOR ENDOXAN
     Route: 041
     Dates: start: 20191024, end: 20191024
  3. DEXTROSE\SODIUM CHLORIDE [Suspect]
     Active Substance: DEXTROSE\SODIUM CHLORIDE
     Dosage: USE AS DILUENT FOR CYTOSAR
     Route: 041
     Dates: start: 20191024, end: 20191026
  4. CYTARABINE [Suspect]
     Active Substance: CYTARABINE
     Indication: Acute lymphocytic leukaemia
     Dosage: DILUTED WITH 250 ML OF GLUCOSE AND SODIUM CHLORIDE INJECTION (4:1)
     Route: 041
     Dates: start: 20191024, end: 20191026
  5. MERCAPTOPURINE [Suspect]
     Active Substance: MERCAPTOPURINE
     Indication: Acute lymphocytic leukaemia
     Dosage: DOSAGE FORM: TABLET
     Route: 048
     Dates: start: 20191024, end: 20191030

REACTIONS (1)
  - Myelosuppression [Recovering/Resolving]

NARRATIVE: CASE EVENT DATE: 20191028
